FAERS Safety Report 8487145 (Version 6)
Quarter: 2014Q1

REPORT INFORMATION
  Report Type: Report from Study
  Country: ES (occurrence: ES)
  Receive Date: 20120402
  Receipt Date: 20140228
  Transmission Date: 20141002
  Serious: Yes (Life-Threatening, Hospitalization)
  Sender: FDA-Public Use
  Company Number: ES-ASTRAZENECA-2012SE20730

PATIENT
  Age: 21332 Day
  Sex: Male

DRUGS (9)
  1. STUDY PROCEDURE [Suspect]
     Route: 065
  2. ADIRO [Suspect]
     Indication: ANGINA PECTORIS
     Route: 048
  3. ROSUVASTATINE [Suspect]
  4. CLEXANE [Suspect]
  5. NIFEDIPINE [Suspect]
  6. IVABRADINE [Suspect]
  7. NITROGLYCERINE [Suspect]
  8. TICAGRELOR [Suspect]
     Indication: ACUTE MYOCARDIAL INFARCTION
     Dosage: LOADING DOSE 180 MG PRE-HOSP FOLLOWED BY PLACEBO IN HOSPITAL
     Route: 048
     Dates: start: 20120226, end: 20120303
  9. TICAGRELOR [Suspect]
     Indication: ACUTE MYOCARDIAL INFARCTION
     Route: 048

REACTIONS (1)
  - Cholecystitis acute [Recovered/Resolved]
